FAERS Safety Report 8156091-8 (Version None)
Quarter: 2012Q1

REPORT INFORMATION
  Report Type: 
  Country: None (occurrence: None)
  Receive Date: 20120103
  Receipt Date: 20110922
  Transmission Date: 20120608
  Serious: No
  Sender: FDA-Public Use
  Company Number: AE-2011-000848

PATIENT
  Age: 51 Year
  Sex: Male
  Weight: 80.7403 kg

DRUGS (8)
  1. PROAIR INHALER (PROCATEROL HYDROCHLORIDE) [Concomitant]
  2. RIBASPHERE [Concomitant]
  3. PEGASYS [Concomitant]
  4. ADVAIR HFA [Concomitant]
  5. OMEPRAZOLE [Concomitant]
  6. AMITRIPTYLINE HCL [Concomitant]
  7. PROMETHAZINE [Concomitant]
  8. INCIVEK [Suspect]
     Dosage: 2250 MG (750 MG, 3 IN 1 D), ORAL
     Route: 048
     Dates: start: 20110708

REACTIONS (6)
  - BLISTER [None]
  - ACCIDENTAL OVERDOSE [None]
  - SWOLLEN TONGUE [None]
  - DRY MOUTH [None]
  - PRURITUS [None]
  - DRY SKIN [None]
